FAERS Safety Report 13745770 (Version 14)
Quarter: 2025Q4

REPORT INFORMATION
  Report Type: Spontaneous
  Country: US (occurrence: US)
  Receive Date: 20170712
  Receipt Date: 20251124
  Transmission Date: 20260117
  Serious: Yes (Hospitalization, Other)
  Sender: PFIZER
  Company Number: US-PFIZER INC-2017268709

PATIENT
  Age: 9 Year
  Sex: Male
  Weight: 30 kg

DRUGS (3)
  1. BENEFIX [Suspect]
     Active Substance: COAGULATION FACTOR IX RECOMBINANT HUMAN\ISOPROPYL ALCOHOL
     Indication: Haemorrhage
     Dosage: 3600 UNITS FOR MAJOR BLEED
     Route: 042
  2. BENEFIX [Suspect]
     Active Substance: COAGULATION FACTOR IX RECOMBINANT HUMAN\ISOPROPYL ALCOHOL
     Dosage: 1800 UNITS FOR MINOR BLEED
     Route: 042
  3. BENEFIX [Suspect]
     Active Substance: COAGULATION FACTOR IX RECOMBINANT HUMAN\ISOPROPYL ALCOHOL
     Dosage: 100IU/KG. INFUSE 8784 UNITSINTRAVENOUSLY AS NEEDED FOR MAJOR BLEED (+/- 10% OF PRESDOSE)
     Route: 042

REACTIONS (6)
  - Head injury [Recovered/Resolved]
  - Limb injury [Recovered/Resolved]
  - Limb injury [Recovered/Resolved]
  - Limb injury [Recovered/Resolved]
  - Limb injury [Recovered/Resolved]
  - Joint injury [Recovered/Resolved]

NARRATIVE: CASE EVENT DATE: 20211008
